FAERS Safety Report 6266057-0 (Version None)
Quarter: 2009Q3

REPORT INFORMATION
  Report Type: 
  Country: None (occurrence: None)
  Receive Date: 20090709
  Receipt Date: 20090626
  Transmission Date: 20100115
  Serious: Yes (Other)
  Sender: FDA-Public Use
  Company Number: 1000007235

PATIENT
  Age: 42 Year
  Sex: Female
  Weight: 150 kg

DRUGS (2)
  1. CELEXA [Suspect]
     Dosage: 20 MG (20 MG, 1 IN 1 D), ORAL
     Route: 048
  2. MERIDIA [Suspect]
     Dosage: 15 MG (15MG,  1 IN 1 D), ORAL
     Route: 048

REACTIONS (4)
  - BLOOD PRESSURE INCREASED [None]
  - DRUG INTERACTION [None]
  - FLUSHING [None]
  - SEROTONIN SYNDROME [None]
